FAERS Safety Report 20345631 (Version 1)
Quarter: 2022Q1

REPORT INFORMATION
  Report Type: Spontaneous
  Country: US (occurrence: US)
  Receive Date: 20220118
  Receipt Date: 20220118
  Transmission Date: 20220424
  Serious: Yes (Other)
  Sender: FDA-Public Use
  Company Number: US-SANOFI-00931530

PATIENT
  Sex: Female

DRUGS (1)
  1. LANTUS SOLOSTAR [Suspect]
     Active Substance: INSULIN GLARGINE
     Indication: Type 2 diabetes mellitus
     Dosage: DRUG STRUCTURE DOSAGE : 20-30 UNITS DRUG INTERVAL DOSAGE : EVERY EVENING

REACTIONS (6)
  - Syncope [Unknown]
  - Chills [Unknown]
  - Dyspnoea [Unknown]
  - Hypersensitivity [Unknown]
  - Urticaria [Unknown]
  - Injection site reaction [Unknown]
